FAERS Safety Report 5624660-2 (Version None)
Quarter: 2008Q1

REPORT INFORMATION
  Report Type: 
  Country: None (occurrence: None)
  Receive Date: 20080213
  Receipt Date: 20080211
  Transmission Date: 20080703
  Serious: Yes (Hospitalization)
  Sender: FDA-Public Use
  Company Number: A0653958A

PATIENT
  Age: 34 Year
  Sex: Female

DRUGS (6)
  1. LAMOTRIGINE [Suspect]
     Indication: BIPOLAR DISORDER
     Route: 048
     Dates: start: 20070124
  2. ABILIFY [Concomitant]
     Dosage: 5MG PER DAY
  3. FOLIC ACID [Concomitant]
     Indication: PREGNANCY
  4. VITAMIN CAP [Concomitant]
     Indication: PREGNANCY
  5. ADDERALL 10 [Concomitant]
     Indication: ATTENTION DEFICIT/HYPERACTIVITY DISORDER
     Dosage: 5MG TWICE PER DAY
     Route: 048
     Dates: start: 20060501, end: 20061206
  6. ZOLOFT [Concomitant]
     Indication: BIPOLAR DISORDER
     Dosage: 100MG PER DAY
     Route: 048
     Dates: start: 20040701

REACTIONS (6)
  - DELIVERY [None]
  - POLYHYDRAMNIOS [None]
  - PREGNANCY INDUCED HYPERTENSION [None]
  - RETAINED PLACENTA OR MEMBRANES [None]
  - UMBILICAL CORD ABNORMALITY [None]
  - UTERINE INFECTION [None]
